FAERS Safety Report 12947282 (Version 1)
Quarter: 2016Q4

REPORT INFORMATION
  Report Type: Spontaneous
  Country: DE (occurrence: DE)
  Receive Date: 20161116
  Receipt Date: 20161116
  Transmission Date: 20170207
  Serious: Yes (Hospitalization)
  Sender: FDA-Public Use
  Company Number: DE-MYLANLABS-2016M1048921

PATIENT

DRUGS (3)
  1. METOPROLOL. [Suspect]
     Active Substance: METOPROLOL
     Dosage: 23.75 MG, QD (DAILY DOSE: 23.75 MG MILLIGRAM(S) EVERY DAY)
     Route: 048
  2. CIPRALEX [Suspect]
     Active Substance: ESCITALOPRAM OXALATE
     Dosage: 10 MG, QD (DAILY DOSE: 10 MG MILLIGRAM(S) EVERY DAY)
     Route: 048
     Dates: start: 20160602, end: 20160609
  3. L-THYROXIN [Concomitant]
     Active Substance: LEVOTHYROXINE SODIUM
     Dosage: 37.5 ?G, QD (DAILY DOSE: 37.5 ?G MICROGRAM(S) EVERY DAY)
     Route: 048

REACTIONS (1)
  - Hyponatraemia [Recovered/Resolved]

NARRATIVE: CASE EVENT DATE: 20160609
